FAERS Safety Report 12757954 (Version 3)
Quarter: 2017Q1

REPORT INFORMATION
  Report Type: Spontaneous
  Country: US (occurrence: US)
  Receive Date: 20160919
  Receipt Date: 20170215
  Transmission Date: 20170428
  Serious: No
  Sender: FDA-Public Use
  Company Number: US-PFIZER INC-2016438045

PATIENT
  Age: 52 Year
  Sex: Female

DRUGS (3)
  1. PENICILLIN G [Suspect]
     Active Substance: PENICILLIN G
     Dosage: UNK
  2. DILANTIN [Suspect]
     Active Substance: PHENYTOIN
  3. TETRACYCLINE HCL [Suspect]
     Active Substance: TETRACYCLINE HYDROCHLORIDE
     Dosage: UNK

REACTIONS (1)
  - Drug hypersensitivity [Unknown]
